FAERS Safety Report 10240070 (Version 4)
Quarter: 2015Q2

REPORT INFORMATION
  Report Type: Spontaneous
  Country: US (occurrence: US)
  Receive Date: 20140617
  Receipt Date: 20150626
  Transmission Date: 20150821
  Serious: Yes (Other)
  Sender: FDA-Public Use
  Company Number: US-UCBSA-118239

PATIENT
  Sex: Female
  Weight: 71.66 kg

DRUGS (8)
  1. CIMZIA [Suspect]
     Active Substance: CERTOLIZUMAB PEGOL
     Indication: CROHN^S DISEASE
     Dosage: 400 MG, MONTHLY (QM)
     Dates: start: 201401
  2. MERCAPTOPURINE. [Concomitant]
     Active Substance: MERCAPTOPURINE
     Dosage: 50 MG, ONCE DAILY (QD) , PILL
     Dates: start: 2013
  3. CYCLOPENTOLATE [Concomitant]
     Active Substance: CYCLOPENTOLATE
     Indication: CROHN^S DISEASE
     Dosage: OPHTHALMIC SOLUTION, DROPS 1%
     Route: 047
     Dates: start: 20131008, end: 201311
  4. CYCLOPENTOLATE [Concomitant]
     Active Substance: CYCLOPENTOLATE
     Indication: EYE DISORDER
  5. MERCAPTOPURINE. [Concomitant]
     Active Substance: MERCAPTOPURINE
     Indication: CROHN^S DISEASE
     Dosage: 75 MG, ONCE DAILY (QD)
     Route: 048
     Dates: start: 20121109, end: 201401
  6. PREDNISOLONE ACETATE. [Concomitant]
     Active Substance: PREDNISOLONE ACETATE
     Indication: CROHN^S DISEASE
     Dosage: 1% OPHTHALMIC SUSPENSION, DROPS
     Route: 047
     Dates: start: 20131008, end: 201311
  7. NITROFURANTOIN MONO/MAC [Concomitant]
     Active Substance: NITROFURANTOIN\NITROFURANTOIN MONOHYDRATE
     Indication: URINARY TRACT INFECTION
     Dosage: 100 MG X2
     Route: 048
     Dates: start: 20131223, end: 20131230
  8. PREDNISOLONE ACETATE. [Concomitant]
     Active Substance: PREDNISOLONE ACETATE
     Indication: EYE DISORDER

REACTIONS (3)
  - Breast feeding [Unknown]
  - Exposure during pregnancy [Unknown]
  - Breech presentation [Unknown]

NARRATIVE: CASE EVENT DATE: 2014
